FAERS Safety Report 12783671 (Version 3)
Quarter: 2016Q4

REPORT INFORMATION
  Report Type: Report from Study
  Country: US (occurrence: US)
  Receive Date: 20160927
  Receipt Date: 20161124
  Transmission Date: 20170207
  Serious: Yes (Other)
  Sender: FDA-Public Use
  Company Number: PHEH2016US024482

PATIENT
  Age: 33 Year
  Sex: Female

DRUGS (1)
  1. GILENYA [Suspect]
     Active Substance: FINGOLIMOD HYDROCHLORIDE
     Indication: MULTIPLE SCLEROSIS
     Dosage: 0.5 MG, QD
     Route: 048
     Dates: start: 20130422, end: 201610

REACTIONS (7)
  - Facial paralysis [Recovered/Resolved]
  - Optic neuropathy [Recovering/Resolving]
  - Facial paresis [Unknown]
  - Dysarthria [Unknown]
  - Metamorphopsia [Unknown]
  - Sensory disturbance [Unknown]
  - Multiple sclerosis relapse [Recovered/Resolved with Sequelae]

NARRATIVE: CASE EVENT DATE: 20160901
